FAERS Safety Report 4483212-0 (Version None)
Quarter: 2004Q3

REPORT INFORMATION
  Report Type: 
  Country: None (occurrence: None)
  Receive Date: 20040921
  Receipt Date: 20040609
  Transmission Date: 20050211
  Serious: Yes (Other)
  Sender: FDA-Public Use
  Company Number: 163-20785-04060306

PATIENT
  Age: 60 Year
  Sex: Female
  Weight: 56.8 kg

DRUGS (10)
  1. THALOMID [Suspect]
     Indication: METASTASES TO CENTRAL NERVOUS SYSTEM
     Dosage: SEE IMAGE
     Dates: start: 20040105, end: 20040501
  2. RADIATION THERAPY [Suspect]
     Indication: METASTASES TO CENTRAL NERVOUS SYSTEM
     Dosage: 2.5 GY DAILY EAC WEEK ON DAYS 1 TO 5, EVERY WEEK FOR 3 WEEKS
  3. CARBOPLATIN [Suspect]
     Indication: METASTASES TO CENTRAL NERVOUS SYSTEM
     Dates: end: 20040501
  4. NAVELBINE [Suspect]
     Indication: METASTASES TO CENTRAL NERVOUS SYSTEM
     Dates: end: 20040501
  5. PREMASIL [Concomitant]
  6. METOPRLOL (METOPROLOL) [Concomitant]
  7. ATORVASTATIN (ATORVASTATIN) [Concomitant]
  8. CALCIUM (CALCIUM) [Concomitant]
  9. PREDNISONE [Concomitant]
  10. LORAZEPAM [Concomitant]

REACTIONS (6)
  - ASTHENIA [None]
  - CEREBRAL INFARCTION [None]
  - DIZZINESS [None]
  - DYSARTHRIA [None]
  - FACIAL PALSY [None]
  - HYPOAESTHESIA [None]
